FAERS Safety Report 6252792-7 (Version None)
Quarter: 2009Q3

REPORT INFORMATION
  Report Type: 
  Country: None (occurrence: None)
  Receive Date: 20090701
  Receipt Date: 20090617
  Transmission Date: 20100115
  Serious: Yes (Other)
  Sender: FDA-Public Use
  Company Number: JP-AMGEN-US337195

PATIENT
  Sex: Female

DRUGS (8)
  1. ENBREL [Suspect]
     Indication: RHEUMATOID ARTHRITIS
     Route: 058
     Dates: start: 20051121, end: 20070813
  2. PARIET [Concomitant]
     Dosage: NOT SPECIFIED
     Route: 048
  3. PREDNISOLONE [Concomitant]
     Indication: RHEUMATOID ARTHRITIS
     Dates: start: 20051121
  4. FOLIC ACID [Concomitant]
     Indication: PROPHYLAXIS
     Route: 048
  5. CONIEL [Concomitant]
     Indication: HYPERTENSION
     Route: 048
  6. BUCILLAMINE [Concomitant]
     Indication: RHEUMATOID ARTHRITIS
     Dates: start: 20051121
  7. RHEUMATREX [Concomitant]
     Indication: RHEUMATOID ARTHRITIS
     Dosage: 2 MG
     Route: 048
  8. ACECOL [Concomitant]
     Indication: HYPERTENSION
     Route: 048

REACTIONS (1)
  - ATYPICAL MYCOBACTERIAL INFECTION [None]
